FAERS Safety Report 8220697-8 (Version None)
Quarter: 2012Q1

REPORT INFORMATION
  Report Type: 
  Country: None (occurrence: None)
  Receive Date: 20120320
  Receipt Date: 20120312
  Transmission Date: 20120608
  Serious: Yes (Hospitalization)
  Sender: FDA-Public Use
  Company Number: US-GENZYME-THYM-1002409

PATIENT
  Sex: Female
  Weight: 64.05 kg

DRUGS (60)
  1. THYMOGLOBULIN [Suspect]
     Indication: PROPHYLAXIS AGAINST TRANSPLANT REJECTION
     Dosage: 100 MG, QD
     Route: 042
     Dates: start: 20110407, end: 20110407
  2. THYMOGLOBULIN [Suspect]
     Dosage: UNK
     Route: 042
     Dates: start: 20110407, end: 20110422
  3. GABAPENTIN [Concomitant]
     Indication: PRODUCT USED FOR UNKNOWN INDICATION
     Dosage: 200 MG, 3X/W
     Route: 048
  4. SODIUM CHLORIDE [Concomitant]
     Indication: PRODUCT USED FOR UNKNOWN INDICATION
     Dosage: 1000 ML, UNK
     Route: 042
  5. LASIX [Concomitant]
     Indication: PRODUCT USED FOR UNKNOWN INDICATION
     Route: 065
  6. MYCOPHENOLATE MOFETIL (CELLCEPT) [Concomitant]
     Dosage: 500 MG, TID
     Route: 048
     Dates: start: 20110928, end: 20110929
  7. PROCRIT [Concomitant]
     Dosage: 16000 U, 1X/W
     Route: 058
     Dates: start: 20110928, end: 20110929
  8. MUPIROCIN CALCIUM [Concomitant]
     Indication: PRODUCT USED FOR UNKNOWN INDICATION
     Dosage: 1 G, Q12HR
     Route: 045
  9. PAROXETINE HCL [Concomitant]
     Indication: PRODUCT USED FOR UNKNOWN INDICATION
     Dosage: 30 MG, QD
     Route: 048
  10. FOLVITE [Concomitant]
     Indication: PRODUCT USED FOR UNKNOWN INDICATION
     Dosage: 1 MG, QD
     Route: 048
  11. XANAX [Concomitant]
     Indication: ANXIETY
     Dosage: 0.25 MG, TID
     Route: 048
  12. PROGRAF [Concomitant]
     Indication: PRODUCT USED FOR UNKNOWN INDICATION
     Dosage: 5 MG, QD
     Route: 048
     Dates: start: 20110929, end: 20110929
  13. VANCOCIN HYDROCHLORIDE [Concomitant]
     Indication: PRODUCT USED FOR UNKNOWN INDICATION
     Dosage: 500 MG, ONCE
     Route: 042
     Dates: start: 20110928, end: 20110928
  14. MERREM [Concomitant]
     Indication: PRODUCT USED FOR UNKNOWN INDICATION
     Dosage: 1 G, BID
     Route: 042
     Dates: start: 20110928, end: 20110928
  15. PROTONIX [Concomitant]
     Indication: PRODUCT USED FOR UNKNOWN INDICATION
     Dosage: 40 MG, QD
     Route: 048
     Dates: start: 20110929, end: 20110929
  16. PEPCID [Concomitant]
     Indication: PRODUCT USED FOR UNKNOWN INDICATION
     Dosage: 40 MG, QD
     Route: 048
  17. B COMPLEX WITH VITAMIN C [Concomitant]
     Indication: PRODUCT USED FOR UNKNOWN INDICATION
     Dosage: 1 DF, QD
     Route: 048
  18. DELTASONE [Concomitant]
     Dosage: 5 MG, QD
     Route: 048
  19. DELTASONE [Concomitant]
     Dosage: 10 MG, QD
     Route: 048
     Dates: start: 20110929, end: 20110929
  20. PERCOCET [Concomitant]
     Indication: PAIN
     Dosage: UNK
     Route: 048
  21. PERCOCET [Concomitant]
     Dosage: UNK
     Route: 048
     Dates: start: 20110928, end: 20110929
  22. PHENERGAN [Concomitant]
     Indication: NAUSEA
     Dosage: 6.25 MG, UNK
     Route: 042
     Dates: start: 20110928, end: 20110928
  23. FLOMAX [Concomitant]
     Indication: PRODUCT USED FOR UNKNOWN INDICATION
     Dosage: 0.4 MG, QD
     Route: 048
     Dates: start: 20110928, end: 20110929
  24. VERSED [Concomitant]
     Indication: PRODUCT USED FOR UNKNOWN INDICATION
     Dosage: 2 MG, ONCE
     Route: 042
     Dates: start: 20110928, end: 20110928
  25. BACTRIM [Concomitant]
     Indication: PRODUCT USED FOR UNKNOWN INDICATION
     Dosage: 1 DF, QD
     Route: 048
     Dates: start: 20110929, end: 20110929
  26. THYMOGLOBULIN [Suspect]
     Dosage: 100 MG, QD
     Route: 042
     Dates: start: 20110409, end: 20110409
  27. CORTICOSTEROIDS [Concomitant]
     Indication: PROPHYLAXIS AGAINST TRANSPLANT REJECTION
     Route: 065
  28. ZOLPIDEM [Concomitant]
     Indication: PRODUCT USED FOR UNKNOWN INDICATION
     Dosage: 40 MG, QD
     Route: 048
  29. XANAX [Concomitant]
     Dosage: 0.25 MG, TID
     Route: 048
     Dates: start: 20110928, end: 20110929
  30. ACETAMINOPHEN [Concomitant]
     Indication: PRODUCT USED FOR UNKNOWN INDICATION
     Dosage: 650 MG, Q4HR
     Route: 048
  31. PROCHLORPERAZINE [Concomitant]
     Indication: PRODUCT USED FOR UNKNOWN INDICATION
     Dosage: 10 MG, UNK
     Route: 042
  32. PHENERGAN [Concomitant]
     Indication: ANTIEMETIC SUPPORTIVE CARE
     Dosage: 12.5 MG, Q4HR
     Route: 042
  33. SODIUM CHLORIDE [Concomitant]
     Dosage: 42 ML, Q1HR
     Route: 042
     Dates: start: 20110928, end: 20110928
  34. COREG [Concomitant]
     Indication: PRODUCT USED FOR UNKNOWN INDICATION
     Dosage: 25 MG, BID
     Route: 048
     Dates: start: 20110929, end: 20110929
  35. VITAMIN D [Concomitant]
     Indication: PRODUCT USED FOR UNKNOWN INDICATION
     Dosage: 3000 U, QD
     Route: 048
     Dates: start: 20110929, end: 20110929
  36. PROCRIT [Concomitant]
     Indication: PRODUCT USED FOR UNKNOWN INDICATION
     Dosage: 16000 U, UNK
     Route: 058
  37. DOCUSATE SODIUM [Concomitant]
     Indication: PRODUCT USED FOR UNKNOWN INDICATION
     Dosage: 100 MG, BID
     Route: 048
  38. CHAPSTICK [Concomitant]
     Indication: PRODUCT USED FOR UNKNOWN INDICATION
     Route: 061
  39. PHENERGAN [Concomitant]
     Dosage: 25 MG, Q4HR
     Route: 048
     Dates: start: 20110928, end: 20110929
  40. NALOXONE [Concomitant]
     Indication: PRODUCT USED FOR UNKNOWN INDICATION
     Dosage: 0.4 MG, PRN
     Route: 042
  41. DIPHENHYDRAMINE HCL [Concomitant]
     Indication: PRODUCT USED FOR UNKNOWN INDICATION
     Dosage: UNK
     Route: 042
  42. COUMADIN [Concomitant]
     Indication: HEPARIN-INDUCED THROMBOCYTOPENIA
     Route: 065
  43. CARBOCAINE [Concomitant]
     Indication: PRODUCT USED FOR UNKNOWN INDICATION
     Dosage: UNK
     Route: 065
     Dates: start: 20110928, end: 20110928
  44. DILAUDID [Concomitant]
     Indication: ANALGESIC THERAPY
     Route: 042
  45. DILAUDID [Concomitant]
     Dosage: 0.2 MG, PRN
     Route: 042
  46. SODIUM CHLORIDE [Concomitant]
     Indication: INTRAOPERATIVE CARE
     Dosage: 1000 ML, UNK
     Route: 050
     Dates: start: 20110928, end: 20110928
  47. LIDOCAINE [Concomitant]
     Indication: PRODUCT USED FOR UNKNOWN INDICATION
     Dosage: 100 MG, PRN
     Route: 065
     Dates: start: 20110928, end: 20110928
  48. MERREM [Concomitant]
     Dosage: 500 MG, ONCE
     Route: 042
     Dates: start: 20110929, end: 20110929
  49. ZOFRAN [Concomitant]
     Indication: PRODUCT USED FOR UNKNOWN INDICATION
     Dosage: 4 MG, UNK
     Route: 042
     Dates: start: 20110928, end: 20110928
  50. MYCOPHENOLATE MOFETIL (CELLCEPT) [Concomitant]
     Indication: PROPHYLAXIS AGAINST TRANSPLANT REJECTION
     Dosage: 1 G, BID
     Route: 048
  51. PEPCID [Concomitant]
     Dosage: 20 MG, ONCE
     Route: 042
     Dates: start: 20110928, end: 20110928
  52. FOLVITE [Concomitant]
     Dosage: 1 MG, QD
     Route: 048
     Dates: start: 20110929, end: 20110929
  53. NYSTATIN [Concomitant]
     Indication: PRODUCT USED FOR UNKNOWN INDICATION
     Dosage: 5 ML, TID
     Route: 048
  54. DELTASONE [Concomitant]
     Indication: PRODUCT USED FOR UNKNOWN INDICATION
     Dosage: 30 MG, ONCE
     Route: 048
  55. DELTASONE [Concomitant]
     Dosage: 20 MG, ONCE
     Route: 048
  56. PROGRAF [Concomitant]
     Dosage: 6 MG, QD
     Route: 048
     Dates: start: 20110929, end: 20110929
  57. ATROPINE [Concomitant]
     Indication: BRADYCARDIA
     Dosage: 0.4 MG, PRN
     Route: 042
     Dates: start: 20110928, end: 20110928
  58. MAXALT [Concomitant]
     Indication: MIGRAINE
     Dosage: 10 MG, ONCE
     Route: 048
     Dates: start: 20110928, end: 20110928
  59. ARGATROBAN [Concomitant]
     Indication: PRODUCT USED FOR UNKNOWN INDICATION
     Dosage: UNK
     Route: 065
     Dates: start: 20110928, end: 20110928
  60. MERREM [Concomitant]
     Dosage: 500 MG, Q12HR
     Route: 042
     Dates: start: 20110929, end: 20110929

REACTIONS (10)
  - PYELONEPHRITIS ACUTE [None]
  - COMPLICATIONS OF TRANSPLANTED KIDNEY [None]
  - KIDNEY TRANSPLANT REJECTION [None]
  - CYTOMEGALOVIRUS VIRAEMIA [None]
  - HYPERKALAEMIA [None]
  - PARVOVIRUS INFECTION [None]
  - LYMPHOCYTE COUNT DECREASED [None]
  - ANAEMIA [None]
  - RENAL TUBULAR NECROSIS [None]
  - THROMBOCYTOPENIA [None]
